FAERS Safety Report 7669679-5 (Version None)
Quarter: 2011Q3

REPORT INFORMATION
  Report Type: 
  Country: None (occurrence: None)
  Receive Date: 20110808
  Receipt Date: 20110804
  Transmission Date: 20111222
  Serious: Yes (Hospitalization)
  Sender: FDA-Public Use
  Company Number: CA-ABBOTT-10P-028-0684815-00

PATIENT
  Sex: Female
  Weight: 54.48 kg

DRUGS (5)
  1. IMURAN [Concomitant]
     Indication: PRODUCT USED FOR UNKNOWN INDICATION
     Route: 048
  2. PREDNISONE [Concomitant]
     Indication: COLITIS
     Route: 048
     Dates: start: 20101203
  3. HUMIRA [Suspect]
     Route: 058
  4. AZATHIOPRINE [Concomitant]
     Indication: COLITIS ULCERATIVE
     Dates: start: 20090101
  5. HUMIRA [Suspect]
     Indication: COLITIS ULCERATIVE
     Route: 058
     Dates: start: 20100503, end: 20101127

REACTIONS (6)
  - VENA CAVA THROMBOSIS [None]
  - ABDOMINAL PAIN [None]
  - PULMONARY EMBOLISM [None]
  - CLOSTRIDIAL INFECTION [None]
  - MUSCULOSKELETAL PAIN [None]
  - PLEURITIC PAIN [None]
